FAERS Safety Report 4669529-5 (Version None)
Quarter: 2005Q2

REPORT INFORMATION
  Report Type: 
  Country: None (occurrence: None)
  Receive Date: 20050523
  Receipt Date: 20050506
  Transmission Date: 20051028
  Serious: Yes (Other)
  Sender: FDA-Public Use
  Company Number: PHBS2005BR06387

PATIENT
  Age: 34 Year
  Sex: Female
  Weight: 63 kg

DRUGS (5)
  1. OLCADIL [Suspect]
     Dosage: 1 DF, QHS
     Route: 048
  2. DACTIL [Concomitant]
  3. BUSCOPAN [Concomitant]
  4. AEROLIN [Concomitant]
  5. TOFRANIL [Suspect]
     Dosage: 25 MG, QD
     Route: 048

REACTIONS (8)
  - ABDOMINAL PAIN [None]
  - BREAST FEEDING [None]
  - BRONCHITIS [None]
  - DIZZINESS [None]
  - DRUG EXPOSURE DURING PREGNANCY [None]
  - HEADACHE [None]
  - INSOMNIA [None]
  - PREMATURE LABOUR [None]
